FAERS Safety Report 14580196 (Version 1)
Quarter: 2018Q1

REPORT INFORMATION
  Report Type: Spontaneous
  Country: US (occurrence: US)
  Receive Date: 20180228
  Receipt Date: 20180228
  Transmission Date: 20180509
  Serious: Yes (Other)
  Sender: FDA-Public Use
  Company Number: US-ACCORD-063824

PATIENT
  Sex: Female

DRUGS (1)
  1. QUETIAPINE ACCORD [Suspect]
     Active Substance: QUETIAPINE
     Indication: PRODUCT USED FOR UNKNOWN INDICATION
     Dosage: STRENGTH: 800 MG EXTENDED RELEASE

REACTIONS (6)
  - Insomnia [Unknown]
  - Hostility [Unknown]
  - Product substitution issue [Unknown]
  - Confusional state [Unknown]
  - Delusion [Unknown]
  - Anxiety [Unknown]
